FAERS Safety Report 20692593 (Version 1)
Quarter: 2022Q2

REPORT INFORMATION
  Report Type: Spontaneous
  Country: US (occurrence: US)
  Receive Date: 20220409
  Receipt Date: 20220409
  Transmission Date: 20220721
  Serious: No
  Sender: FDA-Public Use
  Company Number: US-009507513-2203USA005196

PATIENT
  Age: 61 Year
  Sex: Female

DRUGS (2)
  1. TEMODAR [Suspect]
     Active Substance: TEMOZOLOMIDE
     Indication: Pituitary neoplasm malignant recurrent
     Dosage: 75 MG/M2 PER DAY
     Route: 048
     Dates: start: 2017, end: 201705
  2. TEMODAR [Suspect]
     Active Substance: TEMOZOLOMIDE
     Indication: Radiosensitisation therapy

REACTIONS (1)
  - Product use in unapproved indication [Unknown]

NARRATIVE: CASE EVENT DATE: 20170101
